FAERS Safety Report 11593076 (Version 1)
Quarter: 2015Q4

REPORT INFORMATION
  Report Type: Spontaneous
  Country: JP (occurrence: JP)
  Receive Date: 20151005
  Receipt Date: 20151005
  Transmission Date: 20160304
  Serious: Yes (Other)
  Sender: FDA-Public Use
  Company Number: JP-PFIZER INC-2015285925

PATIENT
  Age: 72 Year
  Sex: Male
  Weight: 53.8 kg

DRUGS (8)
  1. FUNGUARD [Suspect]
     Active Substance: MICAFUNGIN SODIUM
     Indication: FEBRILE NEUTROPENIA
     Dosage: 150 MG, 1X/DAY
     Route: 041
     Dates: start: 20150821, end: 20150826
  2. VANCOMYCIN [Suspect]
     Active Substance: VANCOMYCIN
     Indication: FEBRILE NEUTROPENIA
     Dosage: 750 MG, 2X/DAY
     Route: 041
     Dates: start: 20150820, end: 20150831
  3. FUNGUARD [Suspect]
     Active Substance: MICAFUNGIN SODIUM
     Indication: PNEUMONIA ASPIRATION
  4. ANAEMETRO [Suspect]
     Active Substance: METRONIDAZOLE
     Indication: FEBRILE NEUTROPENIA
     Dosage: 500 MG, 3X/DAY
     Route: 041
     Dates: start: 20150821, end: 20150831
  5. ANAEMETRO [Suspect]
     Active Substance: METRONIDAZOLE
     Indication: PNEUMONIA ASPIRATION
  6. VANCOMYCIN [Suspect]
     Active Substance: VANCOMYCIN
     Indication: PNEUMONIA ASPIRATION
  7. PASIL [Suspect]
     Active Substance: PAZUFLOXACIN MESILATE
     Indication: FEBRILE NEUTROPENIA
     Dosage: 1000 MG, 2X/DAY
     Route: 041
     Dates: start: 20150820, end: 20150830
  8. PASIL [Suspect]
     Active Substance: PAZUFLOXACIN MESILATE
     Indication: PNEUMONIA ASPIRATION

REACTIONS (1)
  - Vitamin K deficiency [Recovered/Resolved]

NARRATIVE: CASE EVENT DATE: 20150824
